FAERS Safety Report 15721447 (Version 1)
Quarter: 2018Q4

REPORT INFORMATION
  Report Type: Spontaneous
  Country: CN (occurrence: CN)
  Receive Date: 20181214
  Receipt Date: 20181214
  Transmission Date: 20190205
  Serious: Yes (Death)
  Sender: FDA-Public Use
  Company Number: CN-ROCHE-2228347

PATIENT

DRUGS (2)
  1. PERAMIVIR [Concomitant]
     Active Substance: PERAMIVIR
     Indication: PRODUCT USED FOR UNKNOWN INDICATION
     Route: 064
  2. OSELTAMIVIR [Suspect]
     Active Substance: OSELTAMIVIR
     Indication: PRODUCT USED FOR UNKNOWN INDICATION
     Route: 064

REACTIONS (3)
  - Hypoxia [Fatal]
  - Foetal death [Fatal]
  - Foetal exposure during pregnancy [Unknown]
